FAERS Safety Report 25878631 (Version 1)
Quarter: 2025Q4

REPORT INFORMATION
  Report Type: Spontaneous
  Country: US (occurrence: None)
  Receive Date: 20251003
  Receipt Date: 20251003
  Transmission Date: 20260118
  Serious: Yes (Hospitalization)
  Sender: FDA-CTU
  Company Number: None

PATIENT
  Age: 49 Year
  Sex: Female

DRUGS (2)
  1. GLATOPA [Suspect]
     Active Substance: GLATIRAMER ACETATE
     Indication: Multiple sclerosis
     Dosage: 20MG DAILY
  2. ALCOHOL [Suspect]
     Active Substance: ALCOHOL
     Dosage: DAILY?

REACTIONS (4)
  - Spinal stenosis [None]
  - Decreased interest [None]
  - Anhedonia [None]
  - Intentional dose omission [None]
